FAERS Safety Report 4936540-6 (Version None)
Quarter: 2006Q1

REPORT INFORMATION
  Report Type: 
  Country: None (occurrence: None)
  Receive Date: 20060302
  Receipt Date: 20060206
  Transmission Date: 20060701
  Serious: No
  Sender: FDA-Public Use
  Company Number: US200602001604

PATIENT
  Sex: Female

DRUGS (1)
  1. CYMBALTA [Suspect]
     Dosage: 60 MG, 4/D,
     Dates: start: 20050601

REACTIONS (2)
  - HEPATIC ENZYME INCREASED [None]
  - PRESCRIBED OVERDOSE [None]
